FAERS Safety Report 9613248 (Version 2)
Quarter: 2013Q4

REPORT INFORMATION
  Report Type: Report from Study
  Country: IT (occurrence: IT)
  Receive Date: 20131010
  Receipt Date: 20131010
  Transmission Date: 20140711
  Serious: Yes (Other)
  Sender: FDA-Public Use
  Company Number: IT-INCYTE CORPORATION-2013IN002310

PATIENT
  Sex: 0

DRUGS (2)
  1. INC424 [Suspect]
     Indication: MYELOFIBROSIS
     Dosage: 20 MG, BID
     Route: 048
     Dates: start: 20130523, end: 20130731
  2. INC424 [Suspect]
     Dosage: UNK
     Route: 048
     Dates: start: 20130813

REACTIONS (1)
  - Erythema nodosum [Not Recovered/Not Resolved]
